FAERS Safety Report 24800397 (Version 1)
Quarter: 2025Q1

REPORT INFORMATION
  Report Type: Spontaneous
  Country: DE (occurrence: DE)
  Receive Date: 20250102
  Receipt Date: 20250102
  Transmission Date: 20250408
  Serious: Yes (Other)
  Sender: TEVA
  Company Number: DE-DCGMA-24204445

PATIENT
  Age: 87 Year
  Sex: Male
  Weight: 56 kg

DRUGS (2)
  1. AZITHROMYCIN [Interacting]
     Active Substance: AZITHROMYCIN
     Indication: Bronchitis
     Dosage: DAILY DOSE: 500 MG ,AZITHROMYCIN ABZ
     Route: 048
     Dates: start: 20241107, end: 20241109
  2. MARCUMAR [Interacting]
     Active Substance: PHENPROCOUMON
     Indication: Atrial fibrillation
     Route: 048
     Dates: start: 2011

REACTIONS (5)
  - Drug interaction [Not Recovered/Not Resolved]
  - Tongue disorder [Not Recovered/Not Resolved]
  - Tongue discomfort [Not Recovered/Not Resolved]
  - International normalised ratio increased [Recovering/Resolving]
  - Glossitis [Not Recovered/Not Resolved]

NARRATIVE: CASE EVENT DATE: 20241114
